FAERS Safety Report 9366004 (Version 2)
Quarter: 2013Q3

REPORT INFORMATION
  Report Type: Spontaneous
  Country: US (occurrence: US)
  Receive Date: 20130625
  Receipt Date: 20130808
  Transmission Date: 20140515
  Serious: Yes (Other)
  Sender: FDA-Public Use
  Company Number: US-PFIZER INC-2013187345

PATIENT
  Age: 84 Year
  Sex: Female
  Weight: 95.24 kg

DRUGS (7)
  1. TIKOSYN [Suspect]
     Indication: ATRIAL FIBRILLATION
     Dosage: 500 MCG TWICE DAILY
     Dates: start: 201304
  2. TIKOSYN [Suspect]
     Indication: ARRHYTHMIA
     Dosage: 500 UG, 2X/DAY
  3. VITAMIN D [Concomitant]
     Dosage: 100000 IU, MONTHLY (50,000 IU 2 TABLETS MONTHLY)
  4. VITAMIN B [Concomitant]
     Dosage: SHOT MONTHLY
  5. CIPRO [Concomitant]
     Dosage: 500 MG, 2X/DAY
  6. MAG-OXIDE [Concomitant]
     Dosage: 400 MG, 2X/DAY
  7. WARFARIN [Concomitant]
     Dosage: UNK, AS DIRECTED

REACTIONS (2)
  - Cognitive disorder [Unknown]
  - Dizziness [Unknown]
